FAERS Safety Report 4886134-6 (Version None)
Quarter: 2006Q1

REPORT INFORMATION
  Report Type: 
  Country: None (occurrence: None)
  Receive Date: 20060120
  Receipt Date: 19991203
  Transmission Date: 20060701
  Serious: Yes (Congenital Anomaly)
  Sender: FDA-Public Use
  Company Number: US-GLAXOSMITHKLINE-A0107062A

PATIENT
  Sex: Female
  Weight: 2.7 kg

DRUGS (4)
  1. LAMICTAL [Suspect]
     Indication: BIPOLAR DISORDER
     Dosage: 25MG PER DAY
  2. LITHIUM [Concomitant]
     Indication: BIPOLAR DISORDER
     Route: 065
  3. PRENATAL VITAMINS [Concomitant]
  4. FOLIC ACID [Concomitant]

REACTIONS (4)
  - CHOANAL ATRESIA [None]
  - DRUG EXPOSURE DURING PREGNANCY [None]
  - EAR CANAL STENOSIS [None]
  - HYPOTHYROIDISM [None]
